FAERS Safety Report 11114417 (Version 2)
Quarter: 2015Q3

REPORT INFORMATION
  Report Type: Report from Study
  Country: US (occurrence: US)
  Receive Date: 20150515
  Receipt Date: 20150702
  Transmission Date: 20151125
  Serious: Yes (Hospitalization)
  Sender: FDA-Public Use
  Company Number: PHEH2015US008538

PATIENT
  Sex: Male
  Weight: 133.79 kg

DRUGS (1)
  1. GILENYA [Suspect]
     Active Substance: FINGOLIMOD HYDROCHLORIDE
     Indication: MULTIPLE SCLEROSIS
     Dosage: 0.5 MG, QD
     Route: 048
     Dates: start: 20150420, end: 20150422

REACTIONS (8)
  - Dehydration [Unknown]
  - Pain in extremity [Unknown]
  - Diarrhoea [Unknown]
  - Dysphagia [Unknown]
  - Asthenia [Unknown]
  - Gastrointestinal infection [Unknown]
  - Insomnia [Unknown]
  - Fatigue [Unknown]
